FAERS Safety Report 6724555-7 (Version None)
Quarter: 2010Q2

REPORT INFORMATION
  Report Type: 
  Country: None (occurrence: None)
  Receive Date: 20100513
  Receipt Date: 20100504
  Transmission Date: 20101027
  Serious: Yes (Hospitalization)
  Sender: FDA-Public Use
  Company Number: GB-PFIZER INC-2010048003

PATIENT
  Age: 67 Year
  Sex: Male

DRUGS (5)
  1. SUTENT [Suspect]
     Indication: RENAL CELL CARCINOMA
     Dosage: UNK
     Route: 048
     Dates: end: 20100118
  2. OXYCODONE [Concomitant]
  3. OMEPRAZOLE [Concomitant]
  4. AMITRIPTYLINE [Concomitant]
  5. DEXAMETHASONE [Concomitant]
     Indication: APPETITE DISORDER
     Dosage: 4 MG, 1X/DAY
     Route: 048
     Dates: start: 20100329, end: 20100415

REACTIONS (3)
  - GASTRITIS EROSIVE [None]
  - HAEMATEMESIS [None]
  - HAEMOGLOBIN DECREASED [None]
